FAERS Safety Report 6709143-0 (Version None)
Quarter: 2010Q2

REPORT INFORMATION
  Report Type: 
  Country: None (occurrence: None)
  Receive Date: 20100504
  Receipt Date: 20100428
  Transmission Date: 20101027
  Serious: Yes (Other)
  Sender: FDA-Public Use
  Company Number: IT-ASTRAZENECA-2010SE19204

PATIENT
  Age: 77 Year
  Sex: Female

DRUGS (3)
  1. BUPIVACAINE HCL [Suspect]
     Indication: SPINAL ANAESTHESIA
     Route: 037
  2. CEFAZOLIN [Concomitant]
     Indication: ANTIBIOTIC PROPHYLAXIS
  3. LACTATED RINGER'S [Concomitant]

REACTIONS (1)
  - MYOCLONUS [None]
